FAERS Safety Report 6928493-6 (Version None)
Quarter: 2010Q3

REPORT INFORMATION
  Report Type: 
  Country: None (occurrence: None)
  Receive Date: 20100817
  Receipt Date: 20100802
  Transmission Date: 20110219
  Serious: No
  Sender: FDA-Public Use
  Company Number: US-PFIZER INC-2010097601

PATIENT
  Sex: Male
  Weight: 23.129 kg

DRUGS (2)
  1. CLEOCIN [Suspect]
     Dosage: TWO TEASPOONFUL THREE TIMES A DAY
     Dates: start: 20050801, end: 20050101
  2. SYMBICORT [Concomitant]
     Dosage: UNK

REACTIONS (1)
  - DIARRHOEA [None]
